FAERS Safety Report 4722469-5 (Version None)
Quarter: 2005Q3

REPORT INFORMATION
  Report Type: 
  Country: None (occurrence: None)
  Receive Date: 20050722
  Receipt Date: 20050503
  Transmission Date: 20060218
  Serious: No
  Sender: FDA-Public Use
  Company Number: US-GLAXOSMITHKLINE-A0557064A

PATIENT
  Age: 65 Year
  Sex: Male

DRUGS (5)
  1. AVANDIA [Suspect]
     Dosage: 8MG PER DAY
     Route: 048
  2. NORVASC [Concomitant]
  3. FOSINOPRIL [Concomitant]
  4. TRICOR [Concomitant]
  5. GEMFIBROZIL [Concomitant]

REACTIONS (1)
  - DRUG INEFFECTIVE [None]
